FAERS Safety Report 12359223 (Version 1)
Quarter: 2016Q2

REPORT INFORMATION
  Report Type: Spontaneous
  Country: US (occurrence: None)
  Receive Date: 20160511
  Receipt Date: 20160511
  Transmission Date: 20160815
  Serious: No
  Sender: FDA-Public Use
  Company Number: None

PATIENT
  Age: 62 Year
  Sex: Male

DRUGS (12)
  1. LISINOPRIL. [Concomitant]
     Active Substance: LISINOPRIL
  2. PROVIGIL [Concomitant]
     Active Substance: MODAFINIL
  3. ZETIA [Concomitant]
     Active Substance: EZETIMIBE
  4. PENTOXIFYLLI [Concomitant]
  5. TAMSULOSIN [Concomitant]
     Active Substance: TAMSULOSIN
  6. METOPROLOL TARTRATE. [Concomitant]
     Active Substance: METOPROLOL TARTRATE
  7. CRESTOR [Concomitant]
     Active Substance: ROSUVASTATIN CALCIUM
  8. INLYTA [Suspect]
     Active Substance: AXITINIB
     Indication: MALIGNANT URINARY TRACT NEOPLASM
     Route: 048
     Dates: start: 20140213
  9. TRIAMT/HCTZ [Concomitant]
     Active Substance: HYDROCHLOROTHIAZIDE\TRIAMTERENE
  10. LEVOTHYROXIN [Concomitant]
     Active Substance: LEVOTHYROXINE
  11. LOMOTIL [Concomitant]
     Active Substance: ATROPINE SULFATE\DIPHENOXYLATE HYDROCHLORIDE
  12. KLOR-CON [Concomitant]
     Active Substance: POTASSIUM CHLORIDE

REACTIONS (1)
  - Diarrhoea [None]
